FAERS Safety Report 6317019-6 (Version None)
Quarter: 2009Q3

REPORT INFORMATION
  Report Type: 
  Country: None (occurrence: None)
  Receive Date: 20090820
  Receipt Date: 20090818
  Transmission Date: 20100115
  Serious: Yes (Death, Hospitalization)
  Sender: FDA-Public Use
  Company Number: FR-SANOFI-SYNTHELABO-A02200902097

PATIENT
  Age: 65 Year
  Sex: Male

DRUGS (10)
  1. ATARAX [Suspect]
     Indication: AGITATION
     Dosage: 75 MG
     Route: 048
     Dates: end: 20090721
  2. ATARAX [Suspect]
     Indication: ANXIETY
     Dosage: 75 MG
     Route: 048
     Dates: end: 20090721
  3. TERCIAN [Suspect]
     Indication: AGITATION
     Dosage: 20 DF
     Route: 048
     Dates: end: 20090721
  4. TERCIAN [Suspect]
     Indication: ANXIETY
     Dosage: 20 DF
     Route: 048
     Dates: end: 20090721
  5. STILNOX [Suspect]
     Indication: AGITATION
     Route: 048
     Dates: end: 20090721
  6. STILNOX [Suspect]
     Indication: ANXIETY
     Route: 048
     Dates: end: 20090721
  7. ROCEPHIN [Suspect]
     Indication: PYELONEPHRITIS ACUTE
     Dosage: UNK
     Route: 051
  8. LAROXYL ROCHE [Suspect]
     Indication: AGITATION
     Dosage: 100 MG
     Route: 048
     Dates: end: 20090721
  9. LAROXYL ROCHE [Suspect]
     Indication: ANXIETY
     Dosage: 100 MG
     Route: 048
     Dates: end: 20090721
  10. BETAMETHASONE [Suspect]
     Indication: CHRONIC OBSTRUCTIVE PULMONARY DISEASE
     Dosage: 6 MG
     Route: 048
     Dates: end: 20090721

REACTIONS (4)
  - BLOOD CREATINE PHOSPHOKINASE INCREASED [None]
  - CYTOLYTIC HEPATITIS [None]
  - HYPERTHERMIA [None]
  - PROTHROMBIN TIME SHORTENED [None]
